FAERS Safety Report 4936985-4 (Version None)
Quarter: 2006Q1

REPORT INFORMATION
  Report Type: 
  Country: None (occurrence: None)
  Receive Date: 20060309
  Receipt Date: 20060120
  Transmission Date: 20060701
  Serious: Yes (Other)
  Sender: FDA-Public Use
  Company Number: JP-ROCHE-434171

PATIENT
  Age: 73 Year
  Sex: Female
  Weight: 30 kg

DRUGS (17)
  1. TAMIFLU [Suspect]
     Route: 048
     Dates: start: 20060113, end: 20060116
  2. TAMIFLU [Suspect]
     Route: 048
     Dates: start: 20060117, end: 20060117
  3. BASEN [Suspect]
     Indication: DIABETES MELLITUS
     Route: 048
     Dates: start: 20041014
  4. AMARYL [Suspect]
     Indication: DIABETES MELLITUS
     Route: 048
     Dates: start: 20041014
  5. MEDROL [Concomitant]
     Route: 048
     Dates: start: 20041014
  6. CLINORIL [Concomitant]
     Route: 048
     Dates: start: 20041014
  7. PROMAC [Concomitant]
     Route: 048
     Dates: start: 20041014
  8. MINOCYCLINE HYDROCHLORIDE [Concomitant]
     Route: 048
     Dates: start: 20041014
  9. OMEPRAL [Concomitant]
     Route: 048
     Dates: start: 20041014
  10. EPINASTINE [Concomitant]
     Route: 048
     Dates: start: 20060110
  11. ACETAMINOPHEN [Concomitant]
     Route: 048
     Dates: start: 20060113, end: 20060114
  12. KLARICID [Concomitant]
     Route: 048
     Dates: start: 20060113, end: 20060117
  13. SULPYRINE [Concomitant]
     Route: 048
     Dates: start: 20060113, end: 20060117
  14. DL-METHYLEPHEDRINE [Concomitant]
     Route: 048
     Dates: start: 20060113, end: 20060117
  15. ALIMEZINE [Concomitant]
     Route: 048
     Dates: start: 20060113, end: 20060117
  16. ANNACA [Concomitant]
     Route: 048
     Dates: start: 20060113, end: 20060117
  17. LAC B [Concomitant]
     Route: 048
     Dates: start: 20060113, end: 20060117

REACTIONS (3)
  - DEHYDRATION [None]
  - DRUG LEVEL INCREASED [None]
  - HYPOGLYCAEMIA [None]
